FAERS Safety Report 4940682-9 (Version None)
Quarter: 2006Q1

REPORT INFORMATION
  Report Type: 
  Country: None (occurrence: None)
  Receive Date: 20060127
  Receipt Date: 20051010
  Transmission Date: 20060701
  Serious: Yes (Other)
  Sender: FDA-Public Use
  Company Number: 2005141690

PATIENT
  Age: 72 Year
  Sex: Female
  Weight: 85.7298 kg

DRUGS (7)
  1. LYRICA [Suspect]
     Indication: NEUROPATHY PERIPHERAL
     Dosage: 150 MG (50 MG, 3 IN 1 D)
     Dates: start: 20050928
  2. GABAPENTIN [Suspect]
     Indication: NEUROPATHY PERIPHERAL
     Dosage: 1600 MG (400 MG, 4 IN 1 D), ORAL
     Route: 048
     Dates: end: 20050901
  3. RELAFEN [Concomitant]
  4. FEMARA [Concomitant]
  5. ZOLOFT [Concomitant]
  6. ANTIHYPERTENSIVES [Concomitant]
  7. ATIVAN [Concomitant]

REACTIONS (2)
  - DRUG INEFFECTIVE [None]
  - PAIN [None]
